FAERS Safety Report 9524542 (Version 1)
Quarter: 2013Q3

REPORT INFORMATION
  Report Type: Spontaneous
  Country: US (occurrence: US)
  Receive Date: 20130916
  Receipt Date: 20130916
  Transmission Date: 20140515
  Serious: No
  Sender: FDA-Public Use
  Company Number: US-PFIZER INC-2013261243

PATIENT
  Sex: Female

DRUGS (1)
  1. VIAGRA [Suspect]
     Dosage: HALF 50MG TABLET EVERY 12 HOURS
     Route: 048

REACTIONS (4)
  - Migraine [Unknown]
  - Hypoaesthesia [Recovering/Resolving]
  - Skin discolouration [Unknown]
  - Off label use [Unknown]
